FAERS Safety Report 4399825-0 (Version None)
Quarter: 2004Q3

REPORT INFORMATION
  Report Type: 
  Country: None (occurrence: None)
  Receive Date: 20040714
  Receipt Date: 20040628
  Transmission Date: 20050211
  Serious: Yes (Other)
  Sender: FDA-Public Use
  Company Number: US_0407104035

PATIENT
  Age: 30 Year
  Sex: Male

DRUGS (4)
  1. OLANZAPINE [Suspect]
     Indication: BIPOLAR DISORDER
     Dosage: 5 MG DAY
  2. HALOPERIDOL [Concomitant]
  3. LITHIUM [Concomitant]
  4. TRIHEXYPHENIDYL HCL [Concomitant]

REACTIONS (3)
  - ERECTILE DYSFUNCTION [None]
  - IDIOSYNCRATIC DRUG REACTION [None]
  - PRIAPISM [None]
